FAERS Safety Report 5890299-7 (Version None)
Quarter: 2008Q3

REPORT INFORMATION
  Report Type: 
  Country: None (occurrence: None)
  Receive Date: 20080919
  Receipt Date: 20080912
  Transmission Date: 20090109
  Serious: Yes (Hospitalization)
  Sender: FDA-Public Use
  Company Number: JP-ALLERGAN-0807669US

PATIENT
  Sex: Male

DRUGS (6)
  1. BOTOX PLACEBO [Suspect]
     Indication: MUSCLE SPASTICITY
     Dosage: UNK, UNK
  2. BLINDED BOTULINUM TOXIN TYPE A - GENERAL [Suspect]
     Indication: MUSCLE SPASTICITY
     Dosage: UNK, UNK
  3. BOTOX [Suspect]
     Indication: MUSCLE SPASTICITY
     Dosage: 4.8 ML, SINGLE
     Dates: start: 20071228, end: 20071228
  4. AMARYL [Concomitant]
     Indication: DIABETES MELLITUS
     Dosage: 6 MG, QD
     Route: 048
  5. MELBIN [Concomitant]
     Indication: DIABETES MELLITUS
     Dosage: 250 MG, QD
     Route: 048
  6. GLUCOBAY [Concomitant]
     Indication: DIABETES MELLITUS
     Dosage: 300 MG, QD
     Route: 048

REACTIONS (1)
  - DIABETES MELLITUS [None]
